FAERS Safety Report 25936936 (Version 1)
Quarter: 2025Q4

REPORT INFORMATION
  Report Type: Spontaneous
  Country: US (occurrence: US)
  Receive Date: 20251017
  Receipt Date: 20251017
  Transmission Date: 20260117
  Serious: Yes (Hospitalization)
  Sender: NOVARTIS
  Company Number: US-002147023-NVSC2025US157873

PATIENT
  Sex: Female

DRUGS (6)
  1. EVEROLIMUS [Suspect]
     Active Substance: EVEROLIMUS
     Indication: Renal cancer
     Dosage: 5 MG, QD (5 MG TABLET ONCE A DAY)
     Route: 065
     Dates: start: 20250920
  2. EVEROLIMUS [Suspect]
     Active Substance: EVEROLIMUS
     Dosage: 18 MG, BIW
     Route: 065
  3. EVEROLIMUS [Suspect]
     Active Substance: EVEROLIMUS
     Dosage: 20 MG, BIW
     Route: 065
  4. LENVIMA [Suspect]
     Active Substance: LENVATINIB
     Indication: Renal cancer
     Dosage: 10 MG, QD  (CAPSULE) ((TAKE 1 CAPSULE OF 10 MG ORAL ONCE A DAY))
     Route: 048
     Dates: start: 20250920
  5. LENVIMA [Suspect]
     Active Substance: LENVATINIB
     Dosage: 8 MG
     Route: 048
     Dates: start: 202509
  6. LENVIMA [Suspect]
     Active Substance: LENVATINIB
     Dosage: 4 MG, QD (4 MG CAPSULE (TAKE 2 CAPSULES ORAL ONCE A DAY))
     Route: 048
     Dates: start: 20251001

REACTIONS (4)
  - Renal haemorrhage [Recovering/Resolving]
  - Constipation [Unknown]
  - Musculoskeletal chest pain [Unknown]
  - Haematochezia [Recovering/Resolving]
